FAERS Safety Report 20710343 (Version 1)
Quarter: 2022Q2

REPORT INFORMATION
  Report Type: Spontaneous
  Country: DE (occurrence: DE)
  Receive Date: 20220414
  Receipt Date: 20220414
  Transmission Date: 20220721
  Serious: Yes (Death, Life-Threatening, Other)
  Sender: FDA-Public Use
  Company Number: DE-AMGEN-DEUSP2022063336

PATIENT

DRUGS (4)
  1. BEVACIZUMAB [Suspect]
     Active Substance: BEVACIZUMAB
     Indication: Hepatocellular carcinoma
     Dosage: 15 MILLIGRAM/KG
     Route: 065
  2. ATEZOLIZUMAB [Concomitant]
     Active Substance: ATEZOLIZUMAB
     Dosage: 1200 MILLIGRAM, Q3WK
  3. BISOPROLOL [Concomitant]
     Active Substance: BISOPROLOL
  4. NEBIVOLOL [Concomitant]
     Active Substance: NEBIVOLOL

REACTIONS (47)
  - Death [Fatal]
  - Oesophageal varices haemorrhage [Fatal]
  - Subarachnoid haemorrhage [Fatal]
  - Hepatocellular carcinoma [Unknown]
  - Renal impairment [Unknown]
  - Ascites [Unknown]
  - Acute kidney injury [Unknown]
  - Skin ulcer [Unknown]
  - Acute on chronic liver failure [Unknown]
  - Hepatic encephalopathy [Unknown]
  - Cholangitis [Unknown]
  - Autoimmune disorder [Unknown]
  - Spontaneous bacterial peritonitis [Unknown]
  - Cardiac failure [Unknown]
  - Immune-mediated hepatitis [Unknown]
  - Oesophageal candidiasis [Unknown]
  - Genital abscess [Unknown]
  - Urinary tract abscess [Unknown]
  - Hyperbilirubinaemia [Unknown]
  - Nephritis [Unknown]
  - Hyperkalaemia [Unknown]
  - Pyrexia [Unknown]
  - Anaemia [Unknown]
  - Haemorrhage [Fatal]
  - Gastrointestinal haemorrhage [Unknown]
  - Epistaxis [Unknown]
  - Diarrhoea [Unknown]
  - Hyponatraemia [Unknown]
  - Hypersensitivity [Unknown]
  - Transient ischaemic attack [Unknown]
  - Pulmonary embolism [Unknown]
  - Therapy partial responder [Unknown]
  - Pruritus [Unknown]
  - Rash [Unknown]
  - Off label use [Unknown]
  - Oedema [Unknown]
  - Vasculitis [Unknown]
  - Insomnia [Unknown]
  - Fatigue [Unknown]
  - Hypertension [Unknown]
  - Nausea [Unknown]
  - Vomiting [Unknown]
  - Cough [Unknown]
  - Dysphonia [Unknown]
  - Proteinuria [Unknown]
  - Stomatitis [Unknown]
  - Dry skin [Unknown]
